FAERS Safety Report 5788283-7 (Version None)
Quarter: 2008Q2

REPORT INFORMATION
  Report Type: 
  Country: None (occurrence: None)
  Receive Date: 20080625
  Receipt Date: 20080613
  Transmission Date: 20081010
  Serious: Yes (Other)
  Sender: FDA-Public Use
  Company Number: CA-MERCK-0806USA02730

PATIENT
  Age: 88 Year
  Sex: Female

DRUGS (6)
  1. TRUSOPT [Suspect]
     Indication: GLAUCOMA
     Route: 047
     Dates: start: 20010101, end: 20050101
  2. XALATAN [Suspect]
     Indication: GLAUCOMA
     Route: 047
     Dates: start: 20020101, end: 20080506
  3. ALPHAGAN [Suspect]
     Indication: GLAUCOMA
     Route: 047
     Dates: start: 20060101, end: 20070101
  4. FLOVENT [Concomitant]
     Route: 065
  5. FLONASE [Concomitant]
     Route: 065
  6. ALBUTEROL [Concomitant]
     Route: 065

REACTIONS (3)
  - DRUG HYPERSENSITIVITY [None]
  - DYSPNOEA [None]
  - SOMNOLENCE [None]
